FAERS Safety Report 22384860 (Version 1)
Quarter: 2023Q2

REPORT INFORMATION
  Report Type: Spontaneous
  Country: US (occurrence: None)
  Receive Date: 20230528
  Receipt Date: 20230528
  Transmission Date: 20230721
  Serious: Yes (Hospitalization)
  Sender: FDA-Public Use
  Company Number: None

PATIENT
  Sex: Male
  Weight: 66.8 kg

DRUGS (7)
  1. YESCARTA [Suspect]
     Active Substance: AXICABTAGENE CILOLEUCEL
     Indication: Follicular lymphoma
     Dosage: OTHER FREQUENCY : ONCE;?
     Route: 041
     Dates: start: 20230301, end: 20230301
  2. ACTEMRA [Concomitant]
     Active Substance: TOCILIZUMAB
  3. dexAMETHasone (Decadron) injection [Concomitant]
  4. anakinra (Kineret) [Concomitant]
  5. acyclovir (Zovirax) [Concomitant]
  6. levETIRAcetam (Keppra [Concomitant]
  7. cefepime (Maxipime [Concomitant]

REACTIONS (2)
  - Cytokine release syndrome [None]
  - Immune effector cell-associated neurotoxicity syndrome [None]
